FAERS Safety Report 9877963 (Version 3)
Quarter: 2014Q2

REPORT INFORMATION
  Report Type: Spontaneous
  Country: US (occurrence: US)
  Receive Date: 20140206
  Receipt Date: 20140402
  Transmission Date: 20141212
  Serious: Yes (Hospitalization, Other)
  Sender: FDA-Public Use
  Company Number: US-JNJFOC-20140118055

PATIENT
  Age: 80 Year
  Sex: Female
  Weight: 62 kg

DRUGS (6)
  1. XARELTO [Suspect]
     Indication: PULMONARY EMBOLISM
     Route: 048
     Dates: start: 20131230, end: 20140103
  2. AMIODARONE [Concomitant]
     Route: 048
     Dates: start: 20131226
  3. PROTONIX [Concomitant]
     Route: 048
     Dates: start: 20131226
  4. LEXAPRO [Concomitant]
     Route: 048
     Dates: start: 20131226
  5. REMERON [Concomitant]
     Route: 048
     Dates: start: 20131226
  6. METFORMIN [Concomitant]
     Route: 048
     Dates: start: 20131226

REACTIONS (4)
  - Pericardial haemorrhage [Recovered/Resolved]
  - Haemoglobin decreased [Unknown]
  - Prothrombin time prolonged [Unknown]
  - International normalised ratio increased [Unknown]
